FAERS Safety Report 11032243 (Version 2)
Quarter: 2015Q2

REPORT INFORMATION
  Report Type: Spontaneous
  Country: US (occurrence: US)
  Receive Date: 20150415
  Receipt Date: 20150525
  Transmission Date: 20150821
  Serious: No
  Sender: FDA-Public Use
  Company Number: US-JNJFOC-20130903659

PATIENT
  Age: 63 Year
  Sex: Female
  Weight: 63.5 kg

DRUGS (8)
  1. OXYCONTIN [Concomitant]
     Active Substance: OXYCODONE HYDROCHLORIDE
     Indication: HIP SURGERY
     Dosage: 10MG IN THE MORNING AND 20MG IN THE EVENING
     Route: 048
     Dates: start: 20130814
  2. OXYCONTIN IR [Concomitant]
     Indication: HIP SURGERY
     Dosage: 10MG IN THE MORNING AND 20MG IN THE EVENING
     Route: 048
     Dates: start: 20130814
  3. FLEXERIL [Concomitant]
     Active Substance: CYCLOBENZAPRINE HYDROCHLORIDE
     Route: 048
  4. TOPROL XL [Concomitant]
     Active Substance: METOPROLOL SUCCINATE
     Dosage: 1/ 2 TABLET AT BEDTIME
     Route: 048
  5. XARELTO [Suspect]
     Active Substance: RIVAROXABAN
     Indication: THROMBOSIS PROPHYLAXIS
     Dosage: 10 MG TABLET ONCE A DAY
     Route: 048
     Dates: start: 20130817
  6. CELEBREX [Concomitant]
     Active Substance: CELECOXIB
     Indication: SWELLING
     Route: 048
  7. FLONASE [Concomitant]
     Active Substance: FLUTICASONE PROPIONATE
     Route: 065
  8. THYROID ORAL [Concomitant]
     Route: 048

REACTIONS (2)
  - Peripheral swelling [Recovering/Resolving]
  - Pyrexia [Recovered/Resolved]

NARRATIVE: CASE EVENT DATE: 20130818
